FAERS Safety Report 17191457 (Version 1)
Quarter: 2019Q4

REPORT INFORMATION
  Report Type: Spontaneous
  Country: US (occurrence: US)
  Receive Date: 20191223
  Receipt Date: 20191223
  Transmission Date: 20200122
  Serious: No
  Sender: FDA-Public Use
  Company Number: US-PFIZER INC-2019548880

PATIENT
  Age: 57 Year
  Sex: Female
  Weight: 86.18 kg

DRUGS (1)
  1. RELPAX [Suspect]
     Active Substance: ELETRIPTAN HYDROBROMIDE
     Indication: MIGRAINE
     Dosage: 40 MG, AS NEEDED (40MG 1 TABLET BY MOUTH TWICE A DAY AS NEEDED MAY REPEAT IN 2 HOURS AS NEEDED)
     Route: 048

REACTIONS (4)
  - Headache [Unknown]
  - Product dispensing error [Unknown]
  - Prescribed overdose [Unknown]
  - Weight increased [Unknown]

NARRATIVE: CASE EVENT DATE: 2019
